FAERS Safety Report 4305452-3 (Version None)
Quarter: 2004Q1

REPORT INFORMATION
  Report Type: 
  Country: None (occurrence: None)
  Receive Date: 20040226
  Receipt Date: 20040116
  Transmission Date: 20041129
  Serious: Yes (Disabling)
  Sender: FDA-Public Use
  Company Number: AU-ROCHE-356201

PATIENT
  Age: 15 Year
  Sex: Male
  Weight: 90 kg

DRUGS (3)
  1. ROACCUTANE [Suspect]
     Indication: ACNE
     Route: 048
     Dates: start: 20031023, end: 20040101
  2. ERYTHROMYCIN [Concomitant]
     Dates: start: 20031023
  3. BENZAC [Concomitant]
     Dates: start: 20031023

REACTIONS (4)
  - BACK PAIN [None]
  - BONE SCAN ABNORMAL [None]
  - CHEST PAIN [None]
  - SAPHO SYNDROME [None]
